FAERS Safety Report 9476678 (Version 3)
Quarter: 2013Q4

REPORT INFORMATION
  Report Type: Spontaneous
  Country: GB (occurrence: GB)
  Receive Date: 20130826
  Receipt Date: 20131224
  Transmission Date: 20140711
  Serious: Yes (Other)
  Sender: FDA-Public Use
  Company Number: PHHY2013GB026159

PATIENT
  Sex: Female

DRUGS (9)
  1. ADOPORT [Suspect]
     Indication: PROPHYLAXIS AGAINST TRANSPLANT REJECTION
     Dosage: UNK
     Route: 048
     Dates: start: 20130314, end: 20130418
  2. ADOPORT [Suspect]
     Dosage: 1 DF, BID
     Route: 048
     Dates: start: 20130419, end: 20130517
  3. TILDIEM [Concomitant]
     Indication: HYPERTENSION
     Dosage: 120 MG
     Route: 048
     Dates: start: 20110928
  4. EZETIMIBE [Concomitant]
     Indication: BLOOD CHOLESTEROL
     Dosage: 10 MG
     Route: 048
     Dates: start: 20070605
  5. ALENDRONIC ACID [Concomitant]
     Indication: PROPHYLAXIS
     Dosage: 70 MG
     Route: 048
     Dates: start: 20070121
  6. PREDNISONE [Concomitant]
     Indication: TRANSPLANT REJECTION
     Dosage: 5 MG
     Route: 048
     Dates: start: 20061206
  7. LEVOTHYROXINE [Concomitant]
     Indication: HYPOTHYROIDISM
     Dosage: 100 UG
     Route: 048
     Dates: start: 20000518
  8. ASPIRIN [Concomitant]
     Indication: ANTIPLATELET THERAPY
     Dosage: 75 MG
     Route: 048
     Dates: start: 20061006
  9. ALFACALCIDOL [Concomitant]
     Indication: BONE DISORDER
     Dosage: 0.25 MG
     Route: 048
     Dates: start: 20070131

REACTIONS (4)
  - Malaise [Unknown]
  - Drug intolerance [Unknown]
  - Headache [Unknown]
  - Joint swelling [Unknown]
